FAERS Safety Report 19236654 (Version 1)
Quarter: 2021Q2

REPORT INFORMATION
  Report Type: Spontaneous
  Country: US (occurrence: US)
  Receive Date: 20210510
  Receipt Date: 20210510
  Transmission Date: 20210717
  Serious: No
  Sender: FDA-Public Use
  Company Number: US-DRREDDYS-USA/USA/21/0135217

PATIENT
  Age: 66 Year
  Sex: Female
  Weight: 69.75 kg

DRUGS (1)
  1. HABITROL [Suspect]
     Active Substance: NICOTINE
     Indication: TOBACCO USER
     Route: 062
     Dates: start: 20210504, end: 20210504

REACTIONS (4)
  - Treatment noncompliance [Unknown]
  - Application site erythema [Unknown]
  - Application site pruritus [Unknown]
  - Skin swelling [Recovered/Resolved]
